FAERS Safety Report 10392267 (Version 1)
Quarter: 2014Q3

REPORT INFORMATION
  Report Type: Report from Study
  Country: CA (occurrence: CA)
  Receive Date: 20140819
  Receipt Date: 20140819
  Transmission Date: 20150326
  Serious: Yes (Hospitalization)
  Sender: FDA-Public Use
  Company Number: CA-BRISTOL-MYERS SQUIBB COMPANY-21307301

PATIENT
  Age: 71 Year
  Sex: Male

DRUGS (14)
  1. CRESTOR [Concomitant]
     Active Substance: ROSUVASTATIN CALCIUM
  2. PANTOPRAZOLE [Concomitant]
     Active Substance: PANTOPRAZOLE SODIUM
  3. ACETAMINOPHEN. [Concomitant]
     Active Substance: ACETAMINOPHEN
  4. ORENCIA [Suspect]
     Active Substance: ABATACEPT
     Indication: RHEUMATOID ARTHRITIS
     Dosage: 14AUG14 INFUSION WAS CANCELLED
     Route: 042
     Dates: start: 20111013
  5. WARFARIN [Concomitant]
     Active Substance: WARFARIN
  6. FOLIC ACID. [Concomitant]
     Active Substance: FOLIC ACID
  7. HYDROXYCHLOROQUINE [Concomitant]
     Active Substance: HYDROXYCHLOROQUINE
  8. SEREVENT [Concomitant]
     Active Substance: SALMETEROL XINAFOATE
  9. SPIRIVA [Concomitant]
     Active Substance: TIOTROPIUM BROMIDE MONOHYDRATE
  10. RISEDRONATE SODIUM. [Concomitant]
     Active Substance: RISEDRONATE SODIUM
  11. PREDNISONE. [Concomitant]
     Active Substance: PREDNISONE
  12. OXAZEPAM. [Concomitant]
     Active Substance: OXAZEPAM
  13. VENTOLIN [Concomitant]
     Active Substance: ALBUTEROL SULFATE
  14. METFORMIN [Concomitant]
     Active Substance: METFORMIN HYDROCHLORIDE

REACTIONS (4)
  - Pain [Unknown]
  - Fall [Recovering/Resolving]
  - Wound [Unknown]
  - Rib fracture [Unknown]

NARRATIVE: CASE EVENT DATE: 201408
